FAERS Safety Report 22361941 (Version 8)
Quarter: 2025Q3

REPORT INFORMATION
  Report Type: Spontaneous
  Country: KR (occurrence: KR)
  Receive Date: 20230524
  Receipt Date: 20250711
  Transmission Date: 20251021
  Serious: Yes (Other)
  Sender: MYLAN
  Company Number: KR-MYLANLABS-2023M1042278

PATIENT
  Sex: Male
  Weight: 75 kg

DRUGS (44)
  1. LYRICA [Suspect]
     Active Substance: PREGABALIN
     Indication: Paraesthesia
     Dosage: 150 MILLIGRAM, QD
     Dates: start: 202210
  2. LYRICA [Suspect]
     Active Substance: PREGABALIN
     Dosage: 150 MILLIGRAM, QD
     Route: 048
     Dates: start: 202210
  3. LYRICA [Suspect]
     Active Substance: PREGABALIN
     Dosage: 150 MILLIGRAM, QD
     Route: 048
     Dates: start: 202210
  4. LYRICA [Suspect]
     Active Substance: PREGABALIN
     Dosage: 150 MILLIGRAM, QD
     Dates: start: 202210
  5. Yuhan metformin xr [Concomitant]
  6. Yuhan metformin xr [Concomitant]
     Route: 048
  7. Yuhan metformin xr [Concomitant]
     Route: 048
  8. Yuhan metformin xr [Concomitant]
  9. SARPOGRELATE [Concomitant]
     Active Substance: SARPOGRELATE
  10. SARPOGRELATE [Concomitant]
     Active Substance: SARPOGRELATE
     Route: 048
  11. SARPOGRELATE [Concomitant]
     Active Substance: SARPOGRELATE
     Route: 048
  12. SARPOGRELATE [Concomitant]
     Active Substance: SARPOGRELATE
  13. URSODIOL [Concomitant]
     Active Substance: URSODIOL
  14. URSODIOL [Concomitant]
     Active Substance: URSODIOL
     Route: 048
  15. URSODIOL [Concomitant]
     Active Substance: URSODIOL
     Route: 048
  16. URSODIOL [Concomitant]
     Active Substance: URSODIOL
  17. Dexid [Concomitant]
  18. Dexid [Concomitant]
     Route: 048
  19. Dexid [Concomitant]
     Route: 048
  20. Dexid [Concomitant]
  21. HARNAL [Concomitant]
     Active Substance: TAMSULOSIN HYDROCHLORIDE
  22. HARNAL [Concomitant]
     Active Substance: TAMSULOSIN HYDROCHLORIDE
     Route: 048
  23. HARNAL [Concomitant]
     Active Substance: TAMSULOSIN HYDROCHLORIDE
     Route: 048
  24. HARNAL [Concomitant]
     Active Substance: TAMSULOSIN HYDROCHLORIDE
  25. GLICLAZIDE [Concomitant]
     Active Substance: GLICLAZIDE
  26. GLICLAZIDE [Concomitant]
     Active Substance: GLICLAZIDE
     Route: 048
  27. GLICLAZIDE [Concomitant]
     Active Substance: GLICLAZIDE
     Route: 048
  28. GLICLAZIDE [Concomitant]
     Active Substance: GLICLAZIDE
  29. Akarb [Concomitant]
  30. Akarb [Concomitant]
     Route: 048
  31. Akarb [Concomitant]
     Route: 048
  32. Akarb [Concomitant]
  33. EMPAGLIFLOZIN\METFORMIN HYDROCHLORIDE [Concomitant]
     Active Substance: EMPAGLIFLOZIN\METFORMIN HYDROCHLORIDE
  34. EMPAGLIFLOZIN\METFORMIN HYDROCHLORIDE [Concomitant]
     Active Substance: EMPAGLIFLOZIN\METFORMIN HYDROCHLORIDE
     Route: 048
  35. EMPAGLIFLOZIN\METFORMIN HYDROCHLORIDE [Concomitant]
     Active Substance: EMPAGLIFLOZIN\METFORMIN HYDROCHLORIDE
     Route: 048
  36. EMPAGLIFLOZIN\METFORMIN HYDROCHLORIDE [Concomitant]
     Active Substance: EMPAGLIFLOZIN\METFORMIN HYDROCHLORIDE
  37. Actozon [Concomitant]
     Dosage: 15 MILLIGRAM, QD
  38. Actozon [Concomitant]
     Dosage: 15 MILLIGRAM, QD
     Route: 048
  39. Actozon [Concomitant]
     Dosage: 15 MILLIGRAM, QD
     Route: 048
  40. Actozon [Concomitant]
     Dosage: 15 MILLIGRAM, QD
  41. Tenelia M SR [Concomitant]
  42. Tenelia M SR [Concomitant]
     Route: 065
  43. Tenelia M SR [Concomitant]
     Route: 065
  44. Tenelia M SR [Concomitant]

REACTIONS (24)
  - Loss of consciousness [Unknown]
  - Cataract [Unknown]
  - Alcohol problem [Unknown]
  - Mood altered [Unknown]
  - Blood pressure increased [Unknown]
  - Dyspepsia [Unknown]
  - Glycosylated haemoglobin increased [Not Recovered/Not Resolved]
  - Blood glucose abnormal [Unknown]
  - Tremor [Unknown]
  - Depressed mood [Unknown]
  - Memory impairment [Unknown]
  - Weight increased [Unknown]
  - Chest discomfort [Recovered/Resolved]
  - Depression [Unknown]
  - Urine odour abnormal [Unknown]
  - Urine abnormality [Unknown]
  - Thirst [Unknown]
  - Eye discharge [Unknown]
  - Dry eye [Unknown]
  - Drug ineffective [Unknown]
  - Nasopharyngitis [Not Recovered/Not Resolved]
  - Cough [Not Recovered/Not Resolved]
  - Oropharyngeal discomfort [Unknown]
  - Sleep disorder [Unknown]
